FAERS Safety Report 9397445 (Version 1)
Quarter: 2013Q3

REPORT INFORMATION
  Report Type: Spontaneous
  Country: BR (occurrence: BR)
  Receive Date: 20130712
  Receipt Date: 20130712
  Transmission Date: 20140515
  Serious: Yes (Hospitalization)
  Sender: FDA-Public Use
  Company Number: BR-PFIZER INC-2013204673

PATIENT
  Age: 76 Year
  Sex: Female

DRUGS (2)
  1. CELEBRA [Suspect]
     Indication: THROMBOSIS
     Dosage: 200MG ONCE DAILY
     Route: 048
     Dates: start: 20120710
  2. CELEBRA [Suspect]
     Dosage: 200MG ONCE DAILY
     Route: 048

REACTIONS (3)
  - Arthropathy [Unknown]
  - Off label use [Unknown]
  - Thrombosis [Unknown]
